FAERS Safety Report 20995152 (Version 2)
Quarter: 2024Q1

REPORT INFORMATION
  Report Type: Spontaneous
  Country: US (occurrence: US)
  Receive Date: 20220622
  Receipt Date: 20240104
  Transmission Date: 20240409
  Serious: Yes (Other)
  Sender: FDA-Public Use
  Company Number: US-INCYTE CORPORATION-2022IN006005

PATIENT

DRUGS (1)
  1. JAKAFI [Suspect]
     Active Substance: RUXOLITINIB
     Indication: Renal disorder
     Dosage: 5 MILLIGRAM, BID
     Route: 065
     Dates: start: 2018

REACTIONS (7)
  - Haematological neoplasm [Unknown]
  - Anxiety [Unknown]
  - Drug intolerance [Unknown]
  - Diarrhoea [Unknown]
  - Dyspepsia [Unknown]
  - Alopecia [Unknown]
  - Off label use [Unknown]
